FAERS Safety Report 7063519-3 (Version None)
Quarter: 2010Q4

REPORT INFORMATION
  Report Type: 
  Country: None (occurrence: None)
  Receive Date: 20101026
  Receipt Date: 20100512
  Transmission Date: 20110411
  Serious: No
  Sender: FDA-Public Use
  Company Number: US-ABBOTT-10P-163-0645372-00

PATIENT
  Sex: Female
  Weight: 54.48 kg

DRUGS (3)
  1. LUPRON DEPOT [Suspect]
     Indication: ENDOMETRIOSIS
     Dates: start: 20100330
  2. NORETHINDRONE [Concomitant]
     Indication: PROPHYLAXIS
  3. NORETHINDRONE [Concomitant]
     Indication: ADVERSE DRUG REACTION

REACTIONS (1)
  - HYPOAESTHESIA FACIAL [None]
